FAERS Safety Report 7822733-7 (Version None)
Quarter: 2011Q4

REPORT INFORMATION
  Report Type: 
  Country: None (occurrence: None)
  Receive Date: 20111018
  Receipt Date: 20111010
  Transmission Date: 20120403
  Serious: Yes (Hospitalization, Other)
  Sender: FDA-Public Use
  Company Number: TR-GILEAD-2011-0043573

PATIENT

DRUGS (3)
  1. FOLIC ACID [Concomitant]
  2. VIREAD [Suspect]
     Indication: HEPATITIS B
     Dosage: UNK
     Dates: start: 20100119
  3. IRON [Concomitant]
     Dosage: UNK

REACTIONS (3)
  - AMNIOTIC FLUID VOLUME DECREASED [None]
  - PREGNANCY [None]
  - PRURITUS [None]
